FAERS Safety Report 14663893 (Version 2)
Quarter: 2018Q2

REPORT INFORMATION
  Report Type: Report from Study
  Country: JP (occurrence: JP)
  Receive Date: 20180321
  Receipt Date: 20180403
  Transmission Date: 20180711
  Serious: Yes (Other)
  Sender: FDA-Public Use
  Company Number: JP-IPSEN BIOPHARMACEUTICALS, INC.-2018-03913

PATIENT
  Age: 57 Year
  Sex: Male

DRUGS (4)
  1. WARFARIN [Concomitant]
     Active Substance: WARFARIN
     Route: 048
  2. SOMATULINE 90MG [Suspect]
     Active Substance: LANREOTIDE ACETATE
     Indication: ACROMEGALY
     Dosage: 90 MG
     Route: 058
     Dates: start: 20140220
  3. LIPITOR [Concomitant]
     Active Substance: ATORVASTATIN CALCIUM
     Route: 048
     Dates: start: 20140828
  4. CABASER [Concomitant]
     Active Substance: CABERGOLINE
     Indication: ACROMEGALY
     Route: 048
     Dates: start: 20090706

REACTIONS (2)
  - Inappropriate schedule of drug administration [Unknown]
  - Hyperthyroidism [Recovered/Resolved]

NARRATIVE: CASE EVENT DATE: 20170201
